FAERS Safety Report 17014534 (Version 2)
Quarter: 2019Q4

REPORT INFORMATION
  Report Type: Spontaneous
  Country: US (occurrence: US)
  Receive Date: 20191111
  Receipt Date: 20191113
  Transmission Date: 20200122
  Serious: No
  Sender: FDA-Public Use
  Company Number: US-UNICHEM PHARMACEUTICALS (USA) INC-UCM201812-000346

PATIENT
  Sex: Female

DRUGS (2)
  1. LITHIUM. [Concomitant]
     Active Substance: LITHIUM
  2. LAMOTRIGINE. [Suspect]
     Active Substance: LAMOTRIGINE

REACTIONS (3)
  - Condition aggravated [Unknown]
  - Bipolar disorder [Unknown]
  - Mood altered [Unknown]
